FAERS Safety Report 11067622 (Version 1)
Quarter: 2015Q2

REPORT INFORMATION
  Report Type: Spontaneous
  Country: US (occurrence: US)
  Receive Date: 20150427
  Receipt Date: 20150427
  Transmission Date: 20150821
  Serious: Yes (Hospitalization)
  Sender: FDA-Public Use
  Company Number: US-ACCORD-030275

PATIENT
  Age: 79 Year
  Sex: Male
  Weight: 79 kg

DRUGS (2)
  1. METHOTREXATE [Suspect]
     Active Substance: METHOTREXATE
     Indication: CENTRAL NERVOUS SYSTEM LYMPHOMA
     Dosage: STRENGTH : 3.08 G/M^2?INITIALLY RECEIVED INTRATHECAL METHOTREXATE AT THE DOSE OF 12 MG.
     Route: 042
  2. LEUCOVORIN [Concomitant]
     Active Substance: LEUCOVORIN
     Route: 048

REACTIONS (4)
  - Drug level increased [Recovering/Resolving]
  - Pancytopenia [Unknown]
  - Subdural haematoma [Unknown]
  - Renal failure [Unknown]
